FAERS Safety Report 8321690-7 (Version None)
Quarter: 2012Q2

REPORT INFORMATION
  Report Type: 
  Country: None (occurrence: None)
  Receive Date: 20120430
  Receipt Date: 20091104
  Transmission Date: 20120825
  Serious: No
  Sender: FDA-Public Use
  Company Number: US-TEVA-2009012130

PATIENT
  Age: 50 Year
  Sex: Female

DRUGS (1)
  1. NUVIGIL [Suspect]
     Dosage: 150 MILLIGRAM;
     Route: 048

REACTIONS (4)
  - INAPPROPRIATE SCHEDULE OF DRUG ADMINISTRATION [None]
  - RASH [None]
  - PALPITATIONS [None]
  - BACK PAIN [None]
